FAERS Safety Report 23097201 (Version 1)
Quarter: 2023Q4

REPORT INFORMATION
  Report Type: Spontaneous
  Country: KR (occurrence: KR)
  Receive Date: 20231023
  Receipt Date: 20231023
  Transmission Date: 20240110
  Serious: Yes (Death, Other)
  Sender: FDA-Public Use
  Company Number: KR-SUN PHARMACEUTICAL INDUSTRIES LTD-2023R1-393149

PATIENT
  Age: 20 Year
  Sex: Male

DRUGS (1)
  1. DOXORUBICIN [Suspect]
     Active Substance: DOXORUBICIN
     Indication: Synovial sarcoma
     Dosage: 600 MILLIGRAM/SQ. METER
     Route: 065

REACTIONS (3)
  - Cardiomyopathy [Fatal]
  - Ischaemic stroke [Unknown]
  - Cardiac failure [Fatal]
